FAERS Safety Report 7673884-1 (Version None)
Quarter: 2011Q3

REPORT INFORMATION
  Report Type: 
  Country: None (occurrence: None)
  Receive Date: 20110810
  Receipt Date: 20110127
  Transmission Date: 20111222
  Serious: No
  Sender: FDA-Public Use
  Company Number: US-GLAXOSMITHKLINE-A0910983A

PATIENT
  Age: 61 Year
  Sex: Female
  Weight: 113.6 kg

DRUGS (2)
  1. EFFEXOR XR [Suspect]
     Indication: DEPRESSION
     Dosage: 150MG TWICE PER DAY
     Route: 048
     Dates: start: 20000101
  2. PAXIL [Suspect]
     Indication: DEPRESSION
     Route: 048

REACTIONS (7)
  - ANXIETY [None]
  - IRRITABILITY [None]
  - THERAPEUTIC RESPONSE DECREASED [None]
  - MUSCLE SPASMS [None]
  - FEELING ABNORMAL [None]
  - DEPRESSION [None]
  - DRUG INEFFECTIVE [None]
